FAERS Safety Report 6451573-9 (Version None)
Quarter: 2009Q4

REPORT INFORMATION
  Report Type: 
  Country: None (occurrence: None)
  Receive Date: 20091118
  Receipt Date: 20090527
  Transmission Date: 20100525
  Serious: Yes (Hospitalization)
  Sender: FDA-Public Use
  Company Number: 2009BI008497

PATIENT
  Age: 56 Year
  Sex: Female
  Weight: 68.9467 kg

DRUGS (13)
  1. TYSABRI [Suspect]
     Indication: MULTIPLE SCLEROSIS
     Dosage: 300 MG;QM;IV
     Route: 042
     Dates: start: 20080414
  2. DETROL LA [Concomitant]
  3. ACTONEL [Concomitant]
  4. CENESTIN [Concomitant]
  5. MAGNESIUM [Concomitant]
  6. CRANBERRY [Concomitant]
  7. ASCORBIC ACID [Concomitant]
  8. FISH OIL [Concomitant]
  9. MULTI-VITAMINS [Concomitant]
  10. OS-CAL [Concomitant]
  11. TIZANIDINE HCL [Concomitant]
  12. VITAMIN D [Concomitant]
  13. ZETIA [Concomitant]

REACTIONS (1)
  - PNEUMONIA [None]
